FAERS Safety Report 8136919-8 (Version None)
Quarter: 2012Q1

REPORT INFORMATION
  Report Type: 
  Country: None (occurrence: None)
  Receive Date: 20120214
  Receipt Date: 20120207
  Transmission Date: 20120608
  Serious: Yes (Hospitalization)
  Sender: FDA-Public Use
  Company Number: US-GILEAD-2011-0046635

PATIENT
  Sex: Male

DRUGS (2)
  1. LETAIRIS [Suspect]
     Indication: PULMONARY HYPERTENSION
     Dosage: 10 MG, UNK
     Route: 048
     Dates: start: 20090911
  2. COUMADIN [Concomitant]

REACTIONS (11)
  - RENAL FAILURE [None]
  - COR PULMONALE [None]
  - PULMONARY HYPERTENSION [None]
  - ANAEMIA [None]
  - TYPE 2 DIABETES MELLITUS [None]
  - ATRIAL FLUTTER [None]
  - ACUTE RESPIRATORY FAILURE [None]
  - DIABETIC NEPHROPATHY [None]
  - SKIN ULCER [None]
  - RENAL FAILURE ACUTE [None]
  - HAEMOPTYSIS [None]
